FAERS Safety Report 22182822 (Version 1)
Quarter: 2023Q2

REPORT INFORMATION
  Report Type: Spontaneous
  Country: US (occurrence: None)
  Receive Date: 20230406
  Receipt Date: 20230406
  Transmission Date: 20230722
  Serious: Yes (Death)
  Sender: FDA-Public Use
  Company Number: None

PATIENT
  Sex: Female

DRUGS (11)
  1. HUMIRA [Suspect]
     Active Substance: ADALIMUMAB
     Indication: Rheumatoid arthritis
     Dosage: OTHER QUANTITY : 40MG/0.4ML ;?FREQUENCY : EVERY OTHER WEEK;?
     Route: 058
     Dates: start: 20211022, end: 202303
  2. HUMIRA [Suspect]
     Active Substance: ADALIMUMAB
     Dosage: OTHER QUANTITY : 1 PEN;?FREQUENCY : EVERY OTHER WEEK;?
     Route: 058
  3. ASPIRIN [Concomitant]
     Active Substance: ASPIRIN
  4. BUMEX [Concomitant]
     Active Substance: BUMETANIDE
  5. CALCITRIOL [Concomitant]
  6. EPOGEN [Concomitant]
     Active Substance: ERYTHROPOIETIN
  7. FAMOTIDINE [Concomitant]
     Active Substance: FAMOTIDINE
  8. NOVOLOG INJ FLEXPEN [Concomitant]
  9. RENAL VITAMIN [Concomitant]
  10. MAGNESIUM CHLORIDE [Concomitant]
     Active Substance: MAGNESIUM CHLORIDE
  11. VELPHORO CHW [Concomitant]

REACTIONS (1)
  - Death [None]
